FAERS Safety Report 26045017 (Version 2)
Quarter: 2025Q4

REPORT INFORMATION
  Report Type: Report from Study
  Country: EU (occurrence: EU)
  Receive Date: 20251114
  Receipt Date: 20251231
  Transmission Date: 20260117
  Serious: No
  Sender: DAIICHI
  Company Number: EU-DSJP-DS-2025-176665-IT

PATIENT
  Age: 59 Year
  Sex: Female

DRUGS (1)
  1. ENHERTU [Suspect]
     Active Substance: FAM-TRASTUZUMAB DERUXTECAN-NXKI
     Indication: HER2 low breast cancer
     Dosage: 5.4 MG/KG, CYCLIC, 4TH LINE
     Route: 065
     Dates: start: 20250930

REACTIONS (1)
  - Gamma-glutamyltransferase increased [Not Recovered/Not Resolved]

NARRATIVE: CASE EVENT DATE: 20251010
